FAERS Safety Report 9167466 (Version 1)
Quarter: 2013Q1

REPORT INFORMATION
  Report Type: Spontaneous
  Country: LV (occurrence: LV)
  Receive Date: 20130318
  Receipt Date: 20130318
  Transmission Date: 20140127
  Serious: Yes (Hospitalization, Other)
  Sender: FDA-Public Use
  Company Number: LV-JNJFOC-20130306481

PATIENT
  Age: 71 Year
  Sex: Female

DRUGS (13)
  1. XARELTO [Suspect]
     Indication: EMBOLISM VENOUS
     Route: 048
     Dates: start: 20130228
  2. XARELTO [Suspect]
     Indication: EMBOLISM VENOUS
     Route: 048
     Dates: start: 20130207, end: 20130220
  3. XARELTO [Suspect]
     Indication: PULMONARY EMBOLISM
     Route: 048
     Dates: start: 20130228
  4. XARELTO [Suspect]
     Indication: PULMONARY EMBOLISM
     Route: 048
     Dates: start: 20130207, end: 20130220
  5. FOLIC ACID [Concomitant]
     Dosage: 0.1 (1/2) TABLET AFTER METHOTREXATE
     Route: 065
  6. TRIFAS [Concomitant]
     Route: 065
  7. CADUET [Concomitant]
     Dosage: 10/10 (1/2 TABLET)
     Route: 065
  8. METHOTREXATE [Concomitant]
     Route: 065
  9. OMEPRAZOLE [Concomitant]
     Route: 065
  10. ALPHA D3 [Concomitant]
     Dosage: 0.25(2 TABS IN 1)
  11. CONCOR [Concomitant]
     Dosage: 2.5 X1
     Route: 065
  12. SERETIDE [Concomitant]
     Dosage: 25/250
     Route: 065
  13. MEDROL [Concomitant]
     Route: 048

REACTIONS (3)
  - Epistaxis [Unknown]
  - Hypertensive crisis [Unknown]
  - Rectal haemorrhage [Unknown]
